FAERS Safety Report 14133029 (Version 1)
Quarter: 2017Q4

REPORT INFORMATION
  Report Type: Report from Study
  Country: FR (occurrence: FR)
  Receive Date: 20171026
  Receipt Date: 20171026
  Transmission Date: 20180321
  Serious: Yes (Death, Hospitalization)
  Sender: FDA-Public Use
  Company Number: FR-MYLANLABS-2017M1066861

PATIENT
  Sex: Male

DRUGS (1)
  1. BACLOFEN. [Suspect]
     Active Substance: BACLOFEN
     Indication: MULTIPLE SCLEROSIS
     Route: 048

REACTIONS (6)
  - Cardiac arrest [Fatal]
  - Hypotension [Fatal]
  - Toxicity to various agents [Fatal]
  - Seizure [Fatal]
  - Hypothermia [Fatal]
  - Coma [Fatal]
